FAERS Safety Report 5611075-6 (Version None)
Quarter: 2008Q1

REPORT INFORMATION
  Report Type: 
  Country: None (occurrence: None)
  Receive Date: 20080201
  Receipt Date: 20080124
  Transmission Date: 20080703
  Serious: Yes (Other)
  Sender: FDA-Public Use
  Company Number: US-KINGPHARMUSA00001-K200701567

PATIENT

DRUGS (1)
  1. EPIPEN [Suspect]
     Dosage: UNK, SINGLE
     Dates: start: 20070712, end: 20070712

REACTIONS (10)
  - ACCIDENTAL EXPOSURE [None]
  - BURNING SENSATION [None]
  - CARPAL TUNNEL SYNDROME [None]
  - HYPERTENSION [None]
  - HYPOAESTHESIA [None]
  - INJECTION SITE PAIN [None]
  - MOVEMENT DISORDER [None]
  - PALPITATIONS [None]
  - PARAESTHESIA [None]
  - X-RAY ABNORMAL [None]
